FAERS Safety Report 19487826 (Version 3)
Quarter: 2022Q1

REPORT INFORMATION
  Report Type: Spontaneous
  Country: US (occurrence: US)
  Receive Date: 20210702
  Receipt Date: 20220125
  Transmission Date: 20220423
  Serious: No
  Sender: FDA-Public Use
  Company Number: US-GLENMARK PHARMACEUTICALS-2021GMK053888

PATIENT

DRUGS (2)
  1. ALYACEN 1/35 [Suspect]
     Active Substance: ETHINYL ESTRADIOL\NORETHINDRONE
     Indication: Product used for unknown indication
     Dosage: UNK
     Route: 048
     Dates: start: 202104
  2. CLARITHROMYCIN [Concomitant]
     Active Substance: CLARITHROMYCIN
     Indication: Product used for unknown indication
     Dosage: UNK
     Route: 065

REACTIONS (4)
  - Somnolence [Unknown]
  - Feeling of relaxation [Unknown]
  - Malaise [Unknown]
  - Product quality issue [Unknown]
